FAERS Safety Report 5706408-6 (Version None)
Quarter: 2008Q2

REPORT INFORMATION
  Report Type: 
  Country: None (occurrence: None)
  Receive Date: 20080411
  Receipt Date: 20080401
  Transmission Date: 20081010
  Serious: Yes (Hospitalization)
  Sender: FDA-Public Use
  Company Number: 2008AL001984

PATIENT
  Age: 45 Year
  Sex: Female

DRUGS (1)
  1. PROPYLTHIOURACIL TAB [Suspect]
     Indication: BASEDOW'S DISEASE
     Dosage: 300 MG;QD;

REACTIONS (15)
  - ANAEMIA [None]
  - CREATININE RENAL CLEARANCE DECREASED [None]
  - CREPITATIONS [None]
  - CYANOSIS [None]
  - DYSPNOEA [None]
  - EXOPHTHALMOS [None]
  - GLOMERULONEPHRITIS [None]
  - HAEMATURIA [None]
  - HAEMOPTYSIS [None]
  - HYPOXIA [None]
  - MOUTH ULCERATION [None]
  - PULMONARY HAEMORRHAGE [None]
  - TACHYCARDIA [None]
  - TACHYPNOEA [None]
  - VASCULITIS [None]
